FAERS Safety Report 9289571 (Version 1)
Quarter: 2013Q2

REPORT INFORMATION
  Report Type: Report from Study
  Country: DE (occurrence: DE)
  Receive Date: 20130515
  Receipt Date: 20130515
  Transmission Date: 20140414
  Serious: Yes (Other)
  Sender: FDA-Public Use
  Company Number: DE-ROCHE-1224176

PATIENT
  Sex: Female
  Weight: 77 kg

DRUGS (1)
  1. TOCILIZUMAB [Suspect]
     Indication: RHEUMATOID ARTHRITIS
     Route: 042

REACTIONS (1)
  - Drug eruption [Recovering/Resolving]
